FAERS Safety Report 7651071-0 (Version None)
Quarter: 2011Q3

REPORT INFORMATION
  Report Type: 
  Country: None (occurrence: None)
  Receive Date: 20110802
  Receipt Date: 20110623
  Transmission Date: 20111222
  Serious: Yes (Other)
  Sender: FDA-Public Use
  Company Number: PHHY2011NL61842

PATIENT
  Sex: Male

DRUGS (2)
  1. ZOMETA [Suspect]
     Indication: PROSTATE CANCER METASTATIC
     Dosage: 04 MG ONCE PER 28 DAYS
     Dates: start: 20110509
  2. ZOMETA [Suspect]
     Dosage: 04 MG ONCE PER 28 DAYS
     Dates: start: 20110607

REACTIONS (2)
  - TERMINAL STATE [None]
  - MALAISE [None]
